FAERS Safety Report 15769116 (Version 1)
Quarter: 2018Q4

REPORT INFORMATION
  Report Type: Spontaneous
  Country: US (occurrence: US)
  Receive Date: 20181224
  Receipt Date: 20181224
  Transmission Date: 20190205
  Serious: Yes (Hospitalization)
  Sender: FDA-Public Use
  Company Number: None

PATIENT

DRUGS (2)
  1. BUPIVACAINE HCL [Suspect]
     Active Substance: BUPIVACAINE HYDROCHLORIDE
     Dosage: ?          OTHER STRENGTH:150 MG PER 30 ML; SINGLE DOSE VIAL?
  2. LIDOCAINE HCL INJECTION [Suspect]
     Active Substance: LIDOCAINE HYDROCHLORIDE
     Dosage: ?          OTHER STRENGTH:300 MG/30 ML; SINGLE DOSE VIAL?

REACTIONS (2)
  - Product label confusion [None]
  - Intercepted product selection error [None]
